FAERS Safety Report 6142303-9 (Version None)
Quarter: 2009Q2

REPORT INFORMATION
  Report Type: 
  Country: None (occurrence: None)
  Receive Date: 20090403
  Receipt Date: 20090331
  Transmission Date: 20091009
  Serious: Yes (Hospitalization)
  Sender: FDA-Public Use
  Company Number: ES-PFIZER INC-2009179640

PATIENT

DRUGS (6)
  1. ALDACTONE [Suspect]
     Indication: HYPERTENSION
     Dosage: 100 MG, 1X/DAY
     Route: 048
     Dates: start: 20080701, end: 20090105
  2. APROVEL [Interacting]
     Indication: HYPERTENSION
     Dosage: 300 MG, 1X/DAY
     Route: 048
     Dates: start: 20080701
  3. COROPRES [Concomitant]
     Dosage: 25 MG, UNK
     Route: 048
     Dates: start: 20080701, end: 20090105
  4. CHLORTHALIDONE [Concomitant]
     Dosage: 50 MG, UNK
     Route: 048
     Dates: start: 20080701, end: 20090105
  5. HYDRAPRESS [Concomitant]
     Dosage: UNK
     Route: 048
     Dates: start: 20080701
  6. SINTROM [Concomitant]
     Dosage: UNK
     Route: 048
     Dates: start: 20080701

REACTIONS (4)
  - ATRIAL FIBRILLATION [None]
  - BRADYARRHYTHMIA [None]
  - DRUG INTERACTION [None]
  - HYPERKALAEMIA [None]
